FAERS Safety Report 12270526 (Version 1)
Quarter: 2016Q2

REPORT INFORMATION
  Report Type: Spontaneous
  Country: US (occurrence: None)
  Receive Date: 20160414
  Receipt Date: 20160414
  Transmission Date: 20160815
  Serious: Yes (Other)
  Sender: FDA-Public Use
  Company Number: None

PATIENT
  Age: 28 Year
  Sex: Female
  Weight: 54.43 kg

DRUGS (2)
  1. PREDNISOLONE ACETATE. [Suspect]
     Active Substance: PREDNISOLONE ACETATE
     Indication: EYE DISORDER
     Route: 047
     Dates: start: 20160412, end: 20160413
  2. PREDNISOLONE ACETATE. [Suspect]
     Active Substance: PREDNISOLONE ACETATE
     Indication: OPHTHALMIC HERPES ZOSTER
     Route: 047
     Dates: start: 20160412, end: 20160413

REACTIONS (1)
  - Contusion [None]

NARRATIVE: CASE EVENT DATE: 20160413
